FAERS Safety Report 26011175 (Version 1)
Quarter: 2025Q4

REPORT INFORMATION
  Report Type: Spontaneous
  Country: CN (occurrence: CN)
  Receive Date: 20251107
  Receipt Date: 20251107
  Transmission Date: 20260118
  Serious: Yes (Other)
  Sender: DR REDDYS
  Company Number: None

PATIENT
  Age: 41 Year
  Sex: Male
  Weight: 79.0 kg

DRUGS (3)
  1. OLANZAPINE [Suspect]
     Active Substance: OLANZAPINE
     Indication: Schizophrenia
     Dosage: 15MG,QD
     Route: 048
     Dates: start: 20250906, end: 20250909
  2. Di ao xin xue kang soft capsule [Concomitant]
     Indication: Cardiovascular disorder
     Dosage: 0.35 G, TID
     Route: 048
     Dates: start: 20250906, end: 20250928
  3. Nitrendipine Tablets [Concomitant]
     Indication: Hypertension
     Dosage: 10MG,BID
     Route: 048
     Dates: start: 20250906, end: 20250928

REACTIONS (3)
  - Hypokalaemia [Recovering/Resolving]
  - Electrocardiogram abnormal [Recovering/Resolving]
  - Blood creatine phosphokinase increased [Recovering/Resolving]

NARRATIVE: CASE EVENT DATE: 20250908
